FAERS Safety Report 9288663 (Version 1)
Quarter: 2013Q2

REPORT INFORMATION
  Report Type: Spontaneous
  Country: US (occurrence: None)
  Receive Date: 20130513
  Receipt Date: 20130513
  Transmission Date: 20140414
  Serious: Yes (Life-Threatening, Hospitalization)
  Sender: FDA-Public Use
  Company Number: None

PATIENT
  Age: 60 Year
  Sex: Male
  Weight: 102.8 kg

DRUGS (2)
  1. FENTANYL [Suspect]
     Indication: PAIN
     Dates: start: 20130423
  2. ACETAMINOPHEN\HYDROCODONE [Suspect]
     Route: 048
     Dates: start: 20130120

REACTIONS (6)
  - Dizziness [None]
  - Dizziness [None]
  - Fall [None]
  - Staring [None]
  - Hypotension [None]
  - Unresponsive to stimuli [None]
